FAERS Safety Report 18122777 (Version 1)
Quarter: 2020Q3

REPORT INFORMATION
  Report Type: Spontaneous
  Country: JP (occurrence: JP)
  Receive Date: 20200807
  Receipt Date: 20200807
  Transmission Date: 20201103
  Serious: Yes (Hospitalization)
  Sender: FDA-Public Use
  Company Number: JP-TEVA-2020-JP-1812478

PATIENT
  Age: 45 Year
  Sex: Male

DRUGS (1)
  1. PREDNISOLONE. [Suspect]
     Active Substance: PREDNISOLONE
     Indication: HENOCH-SCHONLEIN PURPURA
     Dosage: 30 MILLIGRAM DAILY;
     Route: 048

REACTIONS (2)
  - Cerebral infarction [Unknown]
  - Cerebrovascular accident [Unknown]
